FAERS Safety Report 12465615 (Version 2)
Quarter: 2023Q4

REPORT INFORMATION
  Report Type: Spontaneous
  Country: US (occurrence: US)
  Receive Date: 20160614
  Receipt Date: 20231214
  Transmission Date: 20240109
  Serious: Yes (Hospitalization, Other)
  Sender: FDA-Public Use
  Company Number: US-ELI_LILLY_AND_COMPANY-US201606004225

PATIENT
  Age: 31 Year
  Sex: Male

DRUGS (7)
  1. GEMCITABINE HYDROCHLORIDE [Suspect]
     Active Substance: GEMCITABINE HYDROCHLORIDE
     Indication: Hepatocellular carcinoma
     Dosage: 1000 MG/M2, EVERY 2 WEEKS
     Route: 065
  2. OXALIPLATIN [Suspect]
     Active Substance: OXALIPLATIN
     Indication: Hepatocellular carcinoma
     Dosage: 100 MG/M2, EVERY 2 WEEKS
     Route: 065
  3. RIFAXIMIN [Concomitant]
     Active Substance: RIFAXIMIN
     Indication: Prophylaxis
     Dosage: UNK, BID
  4. SODIUM BENZOATE [Concomitant]
     Active Substance: SODIUM BENZOATE
     Indication: Urea cycle disorder
     Dosage: 5.5 G/M2, (FOR 24 HOURS IN THREE DIVIDED DOSES)
  5. CITRULLINE [Concomitant]
     Active Substance: CITRULLINE
     Indication: Urea cycle disorder
     Dosage: 5.5 G/M2, (FOR 24 HOURS IN THREE DIVIDED DOSES)
  6. DEXTROSE [Concomitant]
     Active Substance: DEXTROSE\DEXTROSE MONOHYDRATE
  7. SODIUM CHLORIDE [Concomitant]
     Active Substance: SODIUM CHLORIDE
     Dosage: 1/2 (UNITS UNSPECIFIED), OTHER

REACTIONS (9)
  - Hyperammonaemic encephalopathy [Recovered/Resolved]
  - Aspartate aminotransferase increased [Unknown]
  - Alanine aminotransferase increased [Unknown]
  - Paraneoplastic syndrome [Unknown]
  - Off label use [Unknown]
  - Hypersensitivity [Unknown]
  - Proteinuria [Unknown]
  - Blood alkaline phosphatase increased [Unknown]
  - Blood bilirubin increased [Unknown]
